FAERS Safety Report 8861949 (Version 2)
Quarter: 2012Q4

REPORT INFORMATION
  Report Type: 
  Country: DE (occurrence: JP)
  Receive Date: 20121025
  Receipt Date: 20121105
  Transmission Date: 20130627
  Serious: Yes (Death)
  Sender: FDA-Public Use
  Company Number: JP-BRISTOL-MYERS SQUIBB COMPANY-17048778

PATIENT
  Age: 37 Year
  Sex: Male

DRUGS (15)
  1. METGLUCO [Suspect]
     Indication: DIABETES MELLITUS
     Dosage: 08Oct2012-08Oct2012:80000mg(320DF)
     Route: 048
     Dates: end: 20121008
  2. HALOSTEN [Concomitant]
     Indication: BIPOLAR I DISORDER
     Route: 048
  3. AKINETON [Concomitant]
     Indication: BIPOLAR I DISORDER
     Route: 048
  4. WYPAX [Concomitant]
     Indication: BIPOLAR I DISORDER
     Route: 048
  5. FLURAZEPAM HCL [Concomitant]
     Route: 048
  6. ZOPICOOL [Concomitant]
     Route: 048
  7. ESTAZOLAM [Concomitant]
     Route: 048
  8. HORIZON [Concomitant]
     Indication: BIPOLAR I DISORDER
     Route: 048
  9. CHLORPROMAZINE HCL [Concomitant]
     Indication: BIPOLAR I DISORDER
     Route: 048
  10. PYRETHIA [Concomitant]
     Route: 048
  11. RIVOTRIL [Concomitant]
     Route: 048
  12. EPADEL [Concomitant]
     Route: 048
  13. MAGMITT [Concomitant]
     Route: 048
  14. AMARYL [Concomitant]
     Indication: DIABETES MELLITUS
     Route: 048
  15. MUCOSOLVAN [Concomitant]
     Route: 048

REACTIONS (3)
  - Lactic acidosis [Fatal]
  - Intentional overdose [Fatal]
  - Completed suicide [Fatal]
